FAERS Safety Report 10726588 (Version 1)
Quarter: 2015Q1

REPORT INFORMATION
  Report Type: Spontaneous
  Country: IN (occurrence: IN)
  Receive Date: 20150121
  Receipt Date: 20150121
  Transmission Date: 20150721
  Serious: Yes (Death)
  Sender: FDA-Public Use
  Company Number: IN-PFIZER INC-2015019884

PATIENT
  Age: 3 Year
  Sex: Female

DRUGS (12)
  1. PIPERACILLIN/TAZOBACTAM [Suspect]
     Active Substance: PIPERACILLIN SODIUM\TAZOBACTAM SODIUM
     Indication: STAPHYLOCOCCAL INFECTION
     Dosage: UNK
     Route: 051
  2. CLOXACILLIN [Suspect]
     Active Substance: CLOXACILLIN
     Indication: PNEUMONIA
     Dosage: UNK
     Route: 051
  3. DIGOXIN. [Concomitant]
     Active Substance: DIGOXIN
     Indication: CARDIAC FAILURE CONGESTIVE
     Dosage: UNK
  4. VANCOMYCIN HCL [Suspect]
     Active Substance: VANCOMYCIN HYDROCHLORIDE
     Indication: STAPHYLOCOCCAL INFECTION
     Dosage: UNK
     Route: 051
  5. CEFOTAXIME [Suspect]
     Active Substance: CEFOTAXIME\CEFOTAXIME SODIUM
     Indication: PNEUMONIA
     Dosage: UNK
     Route: 051
  6. CEFOTAXIME [Suspect]
     Active Substance: CEFOTAXIME\CEFOTAXIME SODIUM
     Indication: ANTI-INFECTIVE THERAPY
  7. CEFEPIME [Suspect]
     Active Substance: CEFEPIME\CEFEPIME HYDROCHLORIDE
     Indication: ANTI-INFECTIVE THERAPY
     Dosage: UNK
     Route: 051
  8. AMIKACIN [Suspect]
     Active Substance: AMIKACIN
     Indication: ANTI-INFECTIVE THERAPY
  9. AMIKACIN [Suspect]
     Active Substance: AMIKACIN
     Indication: PNEUMONIA
     Dosage: UNK
     Route: 051
  10. CLOXACILLIN [Suspect]
     Active Substance: CLOXACILLIN
     Indication: ANTI-INFECTIVE THERAPY
  11. FLUCONAZOLE. [Concomitant]
     Active Substance: FLUCONAZOLE
     Indication: FUNGAL SEPSIS
     Dosage: UNK
  12. SODIUM NITROPRUSSIDE [Concomitant]
     Active Substance: SODIUM NITROPRUSSIDE
     Indication: CARDIAC FAILURE CONGESTIVE
     Dosage: UNK
     Route: 041

REACTIONS (11)
  - Oxygen saturation decreased [None]
  - Metabolic acidosis [None]
  - Procedural hypertension [None]
  - Enterococcal infection [Fatal]
  - Sepsis [Fatal]
  - Post procedural complication [None]
  - Drug ineffective [Fatal]
  - Swelling face [None]
  - Peritoneal dialysis [None]
  - Renal impairment [None]
  - Pleural effusion [None]
